FAERS Safety Report 7175471-0 (Version None)
Quarter: 2010Q4

REPORT INFORMATION
  Report Type: 
  Country: None (occurrence: None)
  Receive Date: 20101220
  Receipt Date: 20100315
  Transmission Date: 20110411
  Serious: No
  Sender: FDA-Public Use
  Company Number: US-AMGEN-TCS399859

PATIENT

DRUGS (3)
  1. ENBREL [Suspect]
     Indication: RHEUMATOID ARTHRITIS
     Dosage: 25 MG, 2 TIMES/WK
     Route: 058
     Dates: start: 20030501
  2. UNSPECIFIED MEDICATION [Concomitant]
     Dosage: UNK UNK, UNK
  3. HYDROXYCHLOROQUINE SULFATE [Concomitant]
     Dosage: 220 MG, QWK
     Route: 048

REACTIONS (5)
  - NASOPHARYNGITIS [None]
  - PRODUCTIVE COUGH [None]
  - RESPIRATORY TRACT CONGESTION [None]
  - RHINORRHOEA [None]
  - WRIST DEFORMITY [None]
